FAERS Safety Report 17881621 (Version 2)
Quarter: 2021Q2

REPORT INFORMATION
  Report Type: Spontaneous
  Country: US (occurrence: US)
  Receive Date: 20200610
  Receipt Date: 20210623
  Transmission Date: 20210717
  Serious: No
  Sender: FDA-Public Use
  Company Number: US-SA-2020SA146985

PATIENT
  Age: 55 Year
  Sex: Female

DRUGS (5)
  1. VITAMIN D NOS [Concomitant]
     Active Substance: VITAMIN D NOS
     Dosage: UNK
  2. VIT D [Concomitant]
     Active Substance: VITAMIN D NOS
  3. CENTRUM WOMEN [Concomitant]
     Active Substance: VITAMINS
  4. ZOLOFT [Concomitant]
     Active Substance: SERTRALINE HYDROCHLORIDE
  5. AUBAGIO [Suspect]
     Active Substance: TERIFLUNOMIDE
     Indication: MULTIPLE SCLEROSIS
     Dosage: 14 MG, QD
     Route: 048
     Dates: start: 20200325

REACTIONS (5)
  - Gait disturbance [Unknown]
  - Speech disorder [Unknown]
  - Diarrhoea [Unknown]
  - Drug ineffective [Unknown]
  - Dysstasia [Unknown]

NARRATIVE: CASE EVENT DATE: 2021
